FAERS Safety Report 7264618-3 (Version None)
Quarter: 2011Q1

REPORT INFORMATION
  Report Type: 
  Country: None (occurrence: None)
  Receive Date: 20110131
  Receipt Date: 20110125
  Transmission Date: 20110831
  Serious: No
  Sender: FDA-Public Use
  Company Number: US-PFIZER INC-2011018315

PATIENT
  Sex: Female

DRUGS (3)
  1. VITAMIN D [Concomitant]
     Indication: OSTEOPOROSIS
     Dosage: UNK
  2. LIPITOR [Suspect]
     Indication: BLOOD CHOLESTEROL INCREASED
     Dosage: UNK
     Route: 048
  3. LISINOPRIL [Concomitant]
     Indication: HYPERTENSION
     Dosage: UNK

REACTIONS (3)
  - FIBROMYALGIA [None]
  - MYALGIA [None]
  - BACK PAIN [None]
